FAERS Safety Report 17288084 (Version 2)
Quarter: 2020Q1

REPORT INFORMATION
  Report Type: Spontaneous
  Country: US (occurrence: US)
  Receive Date: 20200120
  Receipt Date: 20200205
  Transmission Date: 20200409
  Serious: Yes (Hospitalization)
  Sender: FDA-Public Use
  Company Number: US-UNITED THERAPEUTICS-UNT-2020-000521

PATIENT
  Age: 37 Year
  Sex: Female

DRUGS (1)
  1. REMODULIN [Suspect]
     Active Substance: TREPROSTINIL
     Indication: PULMONARY ARTERIAL HYPERTENSION
     Dosage: 0.012 ?G/KG, CONTINUING
     Route: 041
     Dates: start: 20191127

REACTIONS (4)
  - Oedema [Unknown]
  - Swelling face [Unknown]
  - Abdominal pain upper [Unknown]
  - Device infusion issue [Unknown]

NARRATIVE: CASE EVENT DATE: 202001
